FAERS Safety Report 10211302 (Version 1)
Quarter: 2014Q2

REPORT INFORMATION
  Report Type: Spontaneous
  Country: US (occurrence: US)
  Receive Date: 20140602
  Receipt Date: 20140602
  Transmission Date: 20141212
  Serious: Yes (Other)
  Sender: FDA-Public Use
  Company Number: US-BAYER-2014-076854

PATIENT
  Age: 56 Year
  Sex: Female
  Weight: 68 kg

DRUGS (1)
  1. ALEVE TABLET [Suspect]
     Indication: MYALGIA
     Dosage: 1 DF, PRN
     Route: 048
     Dates: end: 20140513

REACTIONS (5)
  - Pharyngeal oedema [Recovered/Resolved]
  - Oropharyngeal pain [Recovered/Resolved]
  - Foreign body [Recovered/Resolved]
  - Dyspepsia [Recovered/Resolved]
  - Aptyalism [Recovered/Resolved]
